FAERS Safety Report 12448768 (Version 1)
Quarter: 2016Q2

REPORT INFORMATION
  Report Type: Spontaneous
  Country: US (occurrence: US)
  Receive Date: 20160608
  Receipt Date: 20160608
  Transmission Date: 20160815
  Serious: Yes (Other)
  Sender: FDA-Public Use
  Company Number: US-JNJFOC-20160605930

PATIENT
  Age: 59 Year
  Sex: Male

DRUGS (6)
  1. NEXAVAR [Suspect]
     Active Substance: SORAFENIB
     Indication: HEPATIC CANCER
     Route: 048
     Dates: start: 20160527
  2. LOSARTAN POTASSIUM/HYDROCHLOROTHIAZIDE [Concomitant]
     Active Substance: HYDROCHLOROTHIAZIDE\LOSARTAN POTASSIUM
  3. XARELTO [Suspect]
     Active Substance: RIVAROXABAN
     Indication: PRODUCT USED FOR UNKNOWN INDICATION
     Route: 048
  4. FAMOTIDINE. [Concomitant]
     Active Substance: FAMOTIDINE
     Route: 065
  5. METOPROLOL. [Concomitant]
     Active Substance: METOPROLOL
     Route: 065
  6. TRAMADOL. [Concomitant]
     Active Substance: TRAMADOL
     Route: 065

REACTIONS (2)
  - Abdominal pain [Unknown]
  - Haematochezia [Unknown]

NARRATIVE: CASE EVENT DATE: 20160531
